FAERS Safety Report 5145751-9 (Version None)
Quarter: 2006Q4

REPORT INFORMATION
  Report Type: 
  Country: None (occurrence: None)
  Receive Date: 20060915
  Receipt Date: 20060623
  Transmission Date: 20070319
  Serious: No
  Sender: FDA-Public Use
  Company Number: 2006RL000230

PATIENT
  Age: 80 Year
  Sex: Male
  Weight: 104.3273 kg

DRUGS (3)
  1. OMACOR [Suspect]
     Indication: BLOOD TRIGLYCERIDES INCREASED
     Dosage: 1 GM;BID;PO
     Route: 048
     Dates: end: 20060622
  2. FLOMAX [Concomitant]
  3. ATACAND [Concomitant]

REACTIONS (5)
  - ABASIA [None]
  - ARTHRALGIA [None]
  - ERYTHEMA [None]
  - JOINT SWELLING [None]
  - PAIN [None]
